FAERS Safety Report 7221219-0 (Version None)
Quarter: 2011Q1

REPORT INFORMATION
  Report Type: 
  Country: None (occurrence: None)
  Receive Date: 20110103
  Receipt Date: 20101217
  Transmission Date: 20110831
  Serious: Yes (Hospitalization, Other)
  Sender: FDA-Public Use
  Company Number: 024091

PATIENT
  Sex: Male

DRUGS (2)
  1. KEPPRA [Suspect]
     Dates: start: 20070101
  2. NEUPRO [Suspect]
     Indication: RESTLESS LEGS SYNDROME
     Dosage: TRANSDERMAL, TRANSDERMAL
     Route: 062

REACTIONS (2)
  - MALIGNANT HEPATOBILIARY NEOPLASM [None]
  - NEOPLASM MALIGNANT [None]
